FAERS Safety Report 5911983-2 (Version None)
Quarter: 2008Q4

REPORT INFORMATION
  Report Type: 
  Country: None (occurrence: None)
  Receive Date: 20081008
  Receipt Date: 20081003
  Transmission Date: 20090506
  Serious: Yes (Death)
  Sender: FDA-Public Use
  Company Number: PHHY2008MX23648

PATIENT
  Age: 54 Year
  Sex: Male

DRUGS (1)
  1. EXFORGE [Suspect]
     Indication: HYPERTENSION
     Dosage: 160/5 MG DAILY
     Route: 048

REACTIONS (1)
  - ROAD TRAFFIC ACCIDENT [None]
